FAERS Safety Report 9052096 (Version 1)
Quarter: 2013Q1

REPORT INFORMATION
  Report Type: Spontaneous
  Country: US (occurrence: US)
  Receive Date: 20130206
  Receipt Date: 20130206
  Transmission Date: 20140127
  Serious: Yes (Death, Hospitalization)
  Sender: FDA-Public Use
  Company Number: US-BIOGENIDEC-2013BI009628

PATIENT
  Sex: Male

DRUGS (1)
  1. AVONEX [Suspect]
     Indication: MULTIPLE SCLEROSIS
     Route: 030
     Dates: start: 19980601, end: 1999

REACTIONS (6)
  - Abdominal pain [Recovered/Resolved]
  - Optic neuritis [Recovered/Resolved]
  - Malaise [Recovered/Resolved]
  - Gastric cancer [Fatal]
  - Staphylococcal infection [Recovered/Resolved]
  - Gastrointestinal injury [Recovered/Resolved]
